FAERS Safety Report 25517176 (Version 1)
Quarter: 2025Q3

REPORT INFORMATION
  Report Type: Spontaneous
  Country: US (occurrence: US)
  Receive Date: 20250704
  Receipt Date: 20250704
  Transmission Date: 20251020
  Serious: No
  Sender: INNOGENIX, LLC
  Company Number: US-Innogenix, LLC-2179928

PATIENT

DRUGS (2)
  1. BACLOFEN [Suspect]
     Active Substance: BACLOFEN
     Indication: Hypotonia
  2. LEMTRADA [Concomitant]
     Active Substance: ALEMTUZUMAB
     Dates: start: 202312

REACTIONS (1)
  - Drug ineffective [Unknown]
